FAERS Safety Report 8925423 (Version 1)
Quarter: 2012Q4

REPORT INFORMATION
  Report Type: 
  Country: US (occurrence: US)
  Receive Date: 20121126
  Receipt Date: 20121126
  Transmission Date: 20130627
  Serious: No
  Sender: FDA-Public Use
  Company Number: US-PFIZER INC-2012294078

PATIENT
  Age: 70 Year
  Sex: Male
  Weight: 81.63 kg

DRUGS (1)
  1. ALAVERT [Suspect]
     Indication: SINUS DISORDER
     Dosage: 1 Tablet, once
     Route: 048
     Dates: start: 20121121, end: 20121122

REACTIONS (1)
  - Swelling face [Not Recovered/Not Resolved]
